FAERS Safety Report 25877674 (Version 2)
Quarter: 2025Q4

REPORT INFORMATION
  Report Type: Report from Study
  Country: EU (occurrence: EU)
  Receive Date: 20251003
  Receipt Date: 20251006
  Transmission Date: 20260118
  Serious: Yes (Life-Threatening)
  Sender: RADIUS PHARM
  Company Number: EU-THERAMEX-2025003620

PATIENT
  Age: 71 Year
  Sex: Female
  Weight: 37 kg

DRUGS (1)
  1. ABALOPARATIDE [Suspect]
     Active Substance: ABALOPARATIDE
     Indication: Osteoporosis
     Dosage: 80 MICROGRAM, QD (DAILY 1 INJECTION / 24 HOURS)
     Route: 058
     Dates: start: 20250924, end: 20250925

REACTIONS (8)
  - Respiratory failure [Unknown]
  - Dyspnoea [Unknown]
  - Throat irritation [Unknown]
  - Cough [Unknown]
  - Feeling abnormal [Unknown]
  - Insomnia [Unknown]
  - Malaise [Unknown]
  - Product dose omission issue [Unknown]

NARRATIVE: CASE EVENT DATE: 20250924
